FAERS Safety Report 20924354 (Version 3)
Quarter: 2022Q2

REPORT INFORMATION
  Report Type: Spontaneous
  Country: US (occurrence: US)
  Receive Date: 20220607
  Receipt Date: 20220623
  Transmission Date: 20220720
  Serious: No
  Sender: FDA-Public Use
  Company Number: US-PFIZER INC-202200804133

PATIENT
  Age: 72 Year
  Sex: Female

DRUGS (1)
  1. EUCRISA [Suspect]
     Active Substance: CRISABOROLE
     Indication: Subacute cutaneous lupus erythematosus
     Dosage: UNK, 2X/DAY (APPLY A THIN LAYER TO T AFFECTED AREA(S) BY TOPICAL ROUTE 2 TIMES PER DAY)
     Route: 061

REACTIONS (1)
  - Off label use [Unknown]
